FAERS Safety Report 23659606 (Version 1)
Quarter: 2024Q1

REPORT INFORMATION
  Report Type: Report from Study
  Country: US (occurrence: US)
  Receive Date: 20240321
  Receipt Date: 20240321
  Transmission Date: 20240410
  Serious: Yes (Hospitalization, Other)
  Sender: FDA-Public Use
  Company Number: US-ABBVIE-5682433

PATIENT
  Age: 35 Year
  Sex: Female

DRUGS (2)
  1. HUMIRA [Suspect]
     Active Substance: ADALIMUMAB
     Indication: Crohn^s disease
     Dosage: FORM STRENGTH: 40 MILLIGRAM?CITRATE FREE
     Route: 058
     Dates: start: 20150317, end: 20240128
  2. HUMIRA [Suspect]
     Active Substance: ADALIMUMAB
     Indication: Crohn^s disease
     Dosage: FORM STRENGTH: 40 MILLIGRAM ?CITRATE FREE
     Route: 058
     Dates: start: 20231018, end: 20240204

REACTIONS (5)
  - Internal haemorrhage [Not Recovered/Not Resolved]
  - Off label use [Unknown]
  - Off label use [Recovered/Resolved]
  - Gastrointestinal haemorrhage [Not Recovered/Not Resolved]
  - Fatigue [Unknown]

NARRATIVE: CASE EVENT DATE: 20160316
